FAERS Safety Report 6240620-5 (Version None)
Quarter: 2009Q2

REPORT INFORMATION
  Report Type: 
  Country: None (occurrence: None)
  Receive Date: 20090623
  Receipt Date: 20081211
  Transmission Date: 20091009
  Serious: Yes (Other)
  Sender: FDA-Public Use
  Company Number: US-ASTRAZENECA-2008UW25058

PATIENT
  Age: 73 Year
  Sex: Female
  Weight: 95.7 kg

DRUGS (4)
  1. PULMICORT RESPULES [Suspect]
     Indication: ASTHMA
     Dosage: 0.5 MG/2 ML TWICE A DAY
     Route: 055
     Dates: start: 20070101
  2. ALPHAGAN [Concomitant]
  3. HYDROCHLOROTHIAZDE TAB [Concomitant]
  4. GENERIC ZYRTEC [Concomitant]

REACTIONS (3)
  - ASTHMA [None]
  - GLAUCOMA [None]
  - WHEEZING [None]
